FAERS Safety Report 10164618 (Version 1)
Quarter: 2014Q2

REPORT INFORMATION
  Report Type: Spontaneous
  Country: US (occurrence: US)
  Receive Date: 20140510
  Receipt Date: 20140510
  Transmission Date: 20141212
  Serious: No
  Sender: FDA-Public Use
  Company Number: US-BRISTOL-MYERS SQUIBB COMPANY-20119178

PATIENT
  Age: 69 Year
  Sex: Male

DRUGS (2)
  1. BYDUREON [Suspect]
     Indication: TYPE 2 DIABETES MELLITUS
     Dosage: SUSPENSION
     Route: 058
     Dates: start: 2013
  2. INSULIN [Concomitant]

REACTIONS (1)
  - Decreased appetite [Unknown]
